FAERS Safety Report 16239135 (Version 4)
Quarter: 2019Q3

REPORT INFORMATION
  Report Type: Spontaneous
  Country: RO (occurrence: RO)
  Receive Date: 20190425
  Receipt Date: 20190723
  Transmission Date: 20191004
  Serious: Yes (Other)
  Sender: FDA-Public Use
  Company Number: RO-PFIZER INC-2019169991

PATIENT
  Age: 47 Year
  Sex: Male
  Weight: 97 kg

DRUGS (7)
  1. TERTENSIF [Concomitant]
     Active Substance: INDAPAMIDE
     Dosage: 1.5 MG, 1X/DAY, MORNING
  2. NEBILET [Concomitant]
     Active Substance: NEBIVOLOL
     Dosage: 5 MG, HALF A TABLET, 1X/DAY, MORNING
  3. SUTENT [Suspect]
     Active Substance: SUNITINIB MALATE
     Dosage: 37.5 MG, CYCLIC, 4 WEEKS WITH 2 WEEKS
     Dates: start: 20190511
  4. NEBILET [Concomitant]
     Active Substance: NEBIVOLOL
     Dosage: 5 MG, 1X/DAY
  5. SUTENT [Suspect]
     Active Substance: SUNITINIB MALATE
     Dosage: 37.5 MG, UNK
     Dates: start: 20180201
  6. SUTENT [Suspect]
     Active Substance: SUNITINIB MALATE
     Indication: METASTATIC RENAL CELL CARCINOMA
     Dosage: 50 MG, UNK
     Dates: start: 20180201, end: 20190415
  7. ATACAND [Concomitant]
     Active Substance: CANDESARTAN CILEXETIL
     Dosage: 8 MG, 1X/DAY, EVENING

REACTIONS (4)
  - Blood creatine phosphokinase increased [Unknown]
  - Blood creatine phosphokinase increased [Unknown]
  - Blood creatine phosphokinase MB increased [Unknown]
  - Blood creatine phosphokinase increased [Recovered/Resolved]

NARRATIVE: CASE EVENT DATE: 20190320
